FAERS Safety Report 21553538 (Version 2)
Quarter: 2022Q4

REPORT INFORMATION
  Report Type: Spontaneous
  Country: US (occurrence: US)
  Receive Date: 20221104
  Receipt Date: 20221110
  Transmission Date: 20230112
  Serious: Yes (Life-Threatening, Hospitalization)
  Sender: FDA-Public Use
  Company Number: US-drreddys-LIT/USA/22/0156792

PATIENT
  Age: 66 Year
  Sex: Male

DRUGS (5)
  1. LORAZEPAM [Suspect]
     Active Substance: LORAZEPAM
     Indication: Seizure
     Dosage: SEVERAL MILLIGRAMS (EXACT DOSAGE NOT STATED)
     Route: 042
  2. FOSPHENYTOIN SODIUM [Suspect]
     Active Substance: FOSPHENYTOIN SODIUM
     Indication: Seizure
     Dosage: 1000 MG
     Route: 042
  3. VANCOMYCIN [Concomitant]
     Active Substance: VANCOMYCIN
     Indication: CNS ventriculitis
     Route: 042
  4. CEFTRIAXONE [Concomitant]
     Active Substance: CEFTRIAXONE
     Indication: Product used for unknown indication
  5. METRONIDAZOLE [Concomitant]
     Active Substance: METRONIDAZOLE
     Indication: Product used for unknown indication

REACTIONS (1)
  - Drug ineffective [Unknown]
